FAERS Safety Report 11288238 (Version 2)
Quarter: 2015Q3

REPORT INFORMATION
  Report Type: Report from Study
  Country: MX (occurrence: MX)
  Receive Date: 20150721
  Receipt Date: 20150731
  Transmission Date: 20151125
  Serious: Yes (Other)
  Sender: FDA-Public Use
  Company Number: PHHY2015MX082991

PATIENT
  Sex: Male

DRUGS (1)
  1. ULTIBRO BREEZHALER [Suspect]
     Active Substance: GLYCOPYRRONIUM\INDACATEROL
     Indication: CHRONIC OBSTRUCTIVE PULMONARY DISEASE
     Dosage: 1 DF, Q12H (START: 5 WEEKS AGO)
     Route: 055

REACTIONS (3)
  - Drug prescribing error [Unknown]
  - Dementia Alzheimer^s type [Not Recovered/Not Resolved]
  - Inappropriate schedule of drug administration [Unknown]
